FAERS Safety Report 18162382 (Version 2)
Quarter: 2020Q4

REPORT INFORMATION
  Report Type: Spontaneous
  Country: CA (occurrence: CA)
  Receive Date: 20200818
  Receipt Date: 20201005
  Transmission Date: 20210113
  Serious: Yes (Hospitalization)
  Sender: FDA-Public Use
  Company Number: CA-ACCORD-195684

PATIENT
  Sex: Female

DRUGS (5)
  1. FEMARA [Suspect]
     Active Substance: LETROZOLE
     Indication: CHEMOTHERAPY
     Dosage: STRENGTH : 2.5 MG
  2. TRASTUZUMAB. [Suspect]
     Active Substance: TRASTUZUMAB
     Indication: PRODUCT USED FOR UNKNOWN INDICATION
  3. LETROZOLE. [Suspect]
     Active Substance: LETROZOLE
     Indication: CHEMOTHERAPY
  4. ESTROGEN NOS/TESTOSTERONE [Suspect]
     Active Substance: ESTROGENS\TESTOSTERONE
     Indication: OSTEOPOROSIS
  5. PREMARIN [Suspect]
     Active Substance: ESTROGENS, CONJUGATED
     Indication: CHEMOTHERAPY

REACTIONS (11)
  - Fatigue [Not Recovered/Not Resolved]
  - Onychomadesis [Not Recovered/Not Resolved]
  - Asthenia [Not Recovered/Not Resolved]
  - Breast cancer [Not Recovered/Not Resolved]
  - Product use issue [Unknown]
  - Decreased appetite [Not Recovered/Not Resolved]
  - Eating disorder [Not Recovered/Not Resolved]
  - Burning sensation [Not Recovered/Not Resolved]
  - Alopecia [Not Recovered/Not Resolved]
  - Oral discomfort [Not Recovered/Not Resolved]
  - Pyrexia [Not Recovered/Not Resolved]
